FAERS Safety Report 8150795-9 (Version None)
Quarter: 2012Q1

REPORT INFORMATION
  Report Type: 
  Country: None (occurrence: None)
  Receive Date: 20120220
  Receipt Date: 20120209
  Transmission Date: 20120608
  Serious: Yes (Hospitalization)
  Sender: FDA-Public Use
  Company Number: JP-ELI_LILLY_AND_COMPANY-JP201112007145

PATIENT
  Sex: Female
  Weight: 36 kg

DRUGS (11)
  1. LAC-B [Concomitant]
     Dosage: 3 G, QD
     Dates: start: 20111219
  2. DEXAMETHASONE [Concomitant]
     Route: 065
  3. LANSOPRAZOLE [Concomitant]
     Dosage: 15 MG, BID
     Route: 048
     Dates: start: 20101101
  4. PRIMPERAN TAB [Concomitant]
     Dosage: 10 MG, TID
     Dates: start: 20111114
  5. ETODOLAC [Concomitant]
     Dosage: 200 MG, BID
     Route: 048
     Dates: start: 20101101
  6. GEMZAR [Suspect]
     Dosage: 1000 MG, OTHER
     Route: 042
     Dates: end: 20111212
  7. GEMZAR [Suspect]
     Indication: PANCREATIC CARCINOMA STAGE IV
     Dosage: 1200 MG, OTHER
     Route: 042
     Dates: start: 20101124
  8. LASIX [Concomitant]
     Dosage: 40 MG, BID
     Dates: start: 20110405
  9. ALDACTONE [Concomitant]
     Dosage: 25 MG, BID
     Dates: start: 20110405
  10. LOPERAMIDE HCL [Concomitant]
     Dosage: 1 MG, PRN
     Dates: start: 20111219
  11. FERRUM [Concomitant]
     Dosage: 100 MG, QD
     Dates: start: 20110920

REACTIONS (3)
  - NEUTROPHIL COUNT DECREASED [None]
  - SEPTIC SHOCK [None]
  - HYPOTHYROIDISM [None]
